FAERS Safety Report 7371600-4 (Version None)
Quarter: 2011Q1

REPORT INFORMATION
  Report Type: 
  Country: None (occurrence: None)
  Receive Date: 20110324
  Receipt Date: 20100907
  Transmission Date: 20110831
  Serious: Yes (Hospitalization)
  Sender: FDA-Public Use
  Company Number: US-BAYER-201019470NA

PATIENT
  Sex: Female
  Weight: 56.818 kg

DRUGS (4)
  1. YASMIN [Suspect]
     Indication: MENORRHAGIA
  2. SYNTHROID [Concomitant]
     Dates: start: 19960101
  3. YASMIN [Suspect]
     Indication: CONTRACEPTION
     Dosage: UNK
     Route: 048
     Dates: start: 20070701, end: 20080301
  4. MUCINEX [Concomitant]
     Indication: UPPER RESPIRATORY TRACT INFECTION

REACTIONS (10)
  - VIITH NERVE PARALYSIS [None]
  - HEADACHE [None]
  - DYSARTHRIA [None]
  - CONFUSIONAL STATE [None]
  - DISORIENTATION [None]
  - HYPOAESTHESIA [None]
  - CEREBROVASCULAR ACCIDENT [None]
  - PARAESTHESIA [None]
  - APHASIA [None]
  - ASTHENIA [None]
